FAERS Safety Report 6871145-1 (Version None)
Quarter: 2010Q3

REPORT INFORMATION
  Report Type: 
  Country: None (occurrence: None)
  Receive Date: 20100723
  Receipt Date: 20100720
  Transmission Date: 20110219
  Serious: Yes (Death, Life-Threatening, Hospitalization)
  Sender: FDA-Public Use
  Company Number: CN-ROCHE-692138

PATIENT
  Sex: Female
  Weight: 47 kg

DRUGS (2)
  1. BEVACIZUMAB [Suspect]
     Dosage: FREQUENCY: P3W, PATIENT WAS WITHDRAWN FROM THE STUDY.
     Route: 042
     Dates: start: 20090109, end: 20090722
  2. DOCETAXEL [Suspect]
     Dosage: FREQUENCY: P3W, PATIENT WAS WITHDRAWN FROM THE STUDY.
     Route: 042
     Dates: start: 20090109, end: 20090722

REACTIONS (3)
  - DISSEMINATED INTRAVASCULAR COAGULATION [None]
  - DYSPNOEA [None]
  - RESPIRATORY FAILURE [None]
